FAERS Safety Report 10889511 (Version 2)
Quarter: 2015Q1

REPORT INFORMATION
  Report Type: Report from Study
  Country: US (occurrence: US)
  Receive Date: 20150305
  Receipt Date: 20150329
  Transmission Date: 20150721
  Serious: Yes (Hospitalization, Other)
  Sender: FDA-Public Use
  Company Number: PHEH2015US004031

PATIENT
  Sex: Male

DRUGS (2)
  1. TASIGNA [Suspect]
     Active Substance: NILOTINIB
     Dosage: 150 MG, QD
     Route: 048
  2. TASIGNA [Suspect]
     Active Substance: NILOTINIB
     Indication: PRODUCT USED FOR UNKNOWN INDICATION
     Dosage: 600 MG, QD
     Route: 048

REACTIONS (29)
  - Hyperventilation [Unknown]
  - Pollakiuria [Unknown]
  - Vision blurred [Unknown]
  - Abdominal pain upper [Unknown]
  - Depression [Unknown]
  - White blood cell count increased [Unknown]
  - Hypersomnia [Unknown]
  - Hepatomegaly [Unknown]
  - Dizziness postural [Unknown]
  - Anxiety [Unknown]
  - Drug administration error [Not Recovered/Not Resolved]
  - Abdominal pain [Unknown]
  - Bone pain [Unknown]
  - Normochromic normocytic anaemia [Unknown]
  - Hepatitis C [Unknown]
  - Flank pain [Unknown]
  - Neutropenia [Unknown]
  - Back pain [Unknown]
  - Pain [Unknown]
  - Disease recurrence [Unknown]
  - Splenomegaly [Unknown]
  - Chronic myeloid leukaemia [Unknown]
  - Cholelithiasis [Unknown]
  - Thrombocytopenia [Unknown]
  - Irritability [Unknown]
  - Dyspnoea [Unknown]
  - Anaemia [Unknown]
  - Deep vein thrombosis [Unknown]
  - Arthralgia [Unknown]
